FAERS Safety Report 9395573 (Version 1)
Quarter: 2013Q3

REPORT INFORMATION
  Report Type: Spontaneous
  Country: JP (occurrence: None)
  Receive Date: 20130705
  Receipt Date: 20130705
  Transmission Date: 20140515
  Serious: Yes (Life-Threatening, Other)
  Sender: FDA-Public Use
  Company Number: 2013P1010835

PATIENT
  Age: 66 Year
  Sex: Male
  Weight: 57 kg

DRUGS (8)
  1. EPINEPHRINE [Suspect]
     Indication: LYMPHADENECTOMY
     Route: 058
  2. LIDOCAINE [Concomitant]
  3. METHYLENE BLUE [Concomitant]
  4. EPHEDRINE [Concomitant]
  5. REMIFENTNAYL [Concomitant]
  6. ROCURONIUM [Concomitant]
  7. CEFOPERAZONE [Concomitant]
  8. PROPOFOL [Concomitant]

REACTIONS (5)
  - Arteriospasm coronary [None]
  - Atrioventricular block complete [None]
  - Anaphylactic shock [None]
  - Circulatory collapse [None]
  - Electrocardiogram ST-T segment elevation [None]
